FAERS Safety Report 4511753-6 (Version None)
Quarter: 2004Q4

REPORT INFORMATION
  Report Type: 
  Country: None (occurrence: None)
  Receive Date: 20041123
  Receipt Date: 20041123
  Transmission Date: 20050328
  Serious: Yes (Other)
  Sender: FDA-Public Use
  Company Number: None

PATIENT
  Age: 73 Year
  Sex: Male
  Weight: 83 kg

DRUGS (7)
  1. LOVASTATIN [Suspect]
  2. METOPROLOL TARTRATE [Concomitant]
  3. FOSINOPRIL NA [Concomitant]
  4. COUMADIN [Concomitant]
  5. HYDROCHLOROTHIAZIDE [Concomitant]
  6. LANOXIN [Concomitant]
  7. DILTIAZEM HCL [Concomitant]

REACTIONS (1)
  - DIARRHOEA [None]
